FAERS Safety Report 15279892 (Version 1)
Quarter: 2018Q3

REPORT INFORMATION
  Report Type: Report from Study
  Country: IT (occurrence: IT)
  Receive Date: 20180815
  Receipt Date: 20180815
  Transmission Date: 20181010
  Serious: Yes (Hospitalization)
  Sender: FDA-Public Use
  Company Number: IT-BAYER-2018-148214

PATIENT
  Age: 17 Year
  Sex: Female

DRUGS (1)
  1. CARDIOASPIRIN 100 MG GASTRO?RESISTANT TABLETS [Suspect]
     Active Substance: ASPIRIN
     Dosage: 15 DF
     Route: 048
     Dates: start: 20180716, end: 20180716

REACTIONS (2)
  - Drug abuse [Recovered/Resolved]
  - Nausea [Recovered/Resolved]

NARRATIVE: CASE EVENT DATE: 20180716
